FAERS Safety Report 12351531 (Version 4)
Quarter: 2016Q3

REPORT INFORMATION
  Report Type: Spontaneous
  Country: CO (occurrence: CO)
  Receive Date: 20160510
  Receipt Date: 20160812
  Transmission Date: 20161109
  Serious: Yes (Other)
  Sender: FDA-Public Use
  Company Number: PHHY2016CO031700

PATIENT
  Age: 59 Year
  Sex: Female
  Weight: 48 kg

DRUGS (5)
  1. LEPRIT [Concomitant]
     Indication: FLATULENCE
     Dosage: UNK, QD
     Route: 065
  2. VOTRIENT [Suspect]
     Active Substance: PAZOPANIB HYDROCHLORIDE
     Indication: RENAL CELL CARCINOMA
     Dosage: 200 MG, BID
     Route: 048
     Dates: start: 20150228
  3. VOTRIENT [Suspect]
     Active Substance: PAZOPANIB HYDROCHLORIDE
     Dosage: 1 TABLET AND A HALF AT NIGHT (300 MG)
     Route: 048
     Dates: end: 20160503
  4. LASIX [Concomitant]
     Active Substance: FUROSEMIDE
     Indication: PRODUCT USED FOR UNKNOWN INDICATION
     Dosage: 400 MG, UNK
     Route: 065
  5. AFINITOR [Suspect]
     Active Substance: EVEROLIMUS
     Indication: RENAL CELL CARCINOMA
     Dosage: 10 MG, QD (EVERY EVENING)
     Route: 048
     Dates: start: 20160521, end: 20160624

REACTIONS (16)
  - Abdominal distension [Unknown]
  - Pulmonary mass [Unknown]
  - Poisoning [Unknown]
  - Aggression [Unknown]
  - Blood iron decreased [Unknown]
  - Abdominal pain [Unknown]
  - Diarrhoea [Not Recovered/Not Resolved]
  - Tooth injury [Unknown]
  - Dizziness [Unknown]
  - Haemoglobin decreased [Unknown]
  - Alopecia [Unknown]
  - Vomiting [Unknown]
  - Peripheral swelling [Unknown]
  - Malaise [Unknown]
  - Onychoclasis [Unknown]
  - Off label use [Unknown]

NARRATIVE: CASE EVENT DATE: 20150228
